FAERS Safety Report 21262994 (Version 1)
Quarter: 2022Q3

REPORT INFORMATION
  Report Type: Spontaneous
  Country: US (occurrence: None)
  Receive Date: 20220828
  Receipt Date: 20220828
  Transmission Date: 20221026
  Serious: No
  Sender: FDA-Public Use
  Company Number: US-ROCHE-3168074

PATIENT
  Sex: Female

DRUGS (1)
  1. OCREVUS [Suspect]
     Active Substance: OCRELIZUMAB
     Indication: Primary progressive multiple sclerosis
     Route: 065
     Dates: start: 2017

REACTIONS (1)
  - Epstein-Barr virus infection [Unknown]
